FAERS Safety Report 5580146-5 (Version None)
Quarter: 2008Q1

REPORT INFORMATION
  Report Type: 
  Country: None (occurrence: None)
  Receive Date: 20080103
  Receipt Date: 20071220
  Transmission Date: 20080703
  Serious: Yes (Hospitalization)
  Sender: FDA-Public Use
  Company Number: FR-TYCO HEALTHCARE/MALLINCKRODT-T200701595

PATIENT

DRUGS (1)
  1. LIQUID BAROSPERSE [Suspect]
     Route: 054

REACTIONS (3)
  - COMA [None]
  - CONVULSION [None]
  - WATER INTOXICATION [None]
